FAERS Safety Report 21049864 (Version 1)
Quarter: 2022Q3

REPORT INFORMATION
  Report Type: Spontaneous
  Country: US (occurrence: US)
  Receive Date: 20220706
  Receipt Date: 20220706
  Transmission Date: 20221026
  Serious: No
  Sender: FDA-Public Use
  Company Number: US-PFIZER INC-202200916835

PATIENT
  Age: 33 Year
  Sex: Female

DRUGS (10)
  1. IBRANCE [Suspect]
     Active Substance: PALBOCICLIB
     Indication: Breast cancer female
     Dosage: 75 MG, CYCLIC (DAILY FOR 14 DAYS, THEN 14 DAYS OFF)
     Route: 048
     Dates: start: 20220518
  2. IBRANCE [Suspect]
     Active Substance: PALBOCICLIB
     Dosage: 75 MG
     Dates: start: 20220623
  3. LUPRON [Concomitant]
     Active Substance: LEUPROLIDE ACETATE
     Dosage: UNK
  4. LETROZOLE [Concomitant]
     Active Substance: LETROZOLE
     Dosage: UNK
  5. PERCOCET [Concomitant]
     Active Substance: ACETAMINOPHEN\OXYCODONE HYDROCHLORIDE
     Dosage: UNK
  6. TYLENOL [Concomitant]
     Active Substance: ACETAMINOPHEN
     Dosage: UNK
  7. CALCIUM [Concomitant]
     Active Substance: CALCIUM
     Dosage: UNK
  8. TRAMADOL [Concomitant]
     Active Substance: TRAMADOL
     Dosage: UNK
  9. ZOMETA [Concomitant]
     Active Substance: ZOLEDRONIC ACID
     Dosage: UNK
  10. ZOFRAN [Concomitant]
     Active Substance: ONDANSETRON HYDROCHLORIDE
     Dosage: UNK

REACTIONS (4)
  - Neutrophil count decreased [Not Recovered/Not Resolved]
  - Fatigue [Not Recovered/Not Resolved]
  - Back pain [Not Recovered/Not Resolved]
  - Pain [Not Recovered/Not Resolved]

NARRATIVE: CASE EVENT DATE: 20220101
